FAERS Safety Report 23336277 (Version 2)
Quarter: 2024Q1

REPORT INFORMATION
  Report Type: Report from Study
  Country: JP (occurrence: JP)
  Receive Date: 20231225
  Receipt Date: 20240204
  Transmission Date: 20240409
  Serious: Yes (Other)
  Sender: FDA-Public Use
  Company Number: JP-002147023-NVSJ2023JP015647

PATIENT
  Age: 72 Year
  Sex: Male

DRUGS (1)
  1. SCEMBLIX [Suspect]
     Active Substance: ASCIMINIB HYDROCHLORIDE
     Indication: Chronic myeloid leukaemia
     Dosage: 80 MG
     Route: 048
     Dates: start: 20230112

REACTIONS (2)
  - Hyperkalaemia [Unknown]
  - Blood creatinine increased [Recovering/Resolving]
